FAERS Safety Report 9701708 (Version 1)
Quarter: 2013Q4

REPORT INFORMATION
  Report Type: Report from Study
  Country: US (occurrence: US)
  Receive Date: 20131119
  Receipt Date: 20131119
  Transmission Date: 20140711
  Serious: Yes (Other)
  Sender: FDA-Public Use
  Company Number: US-SAVIENT-2012S1000095

PATIENT
  Age: 45 Year
  Sex: Male

DRUGS (13)
  1. KRYSTEXXA INJECTION [Suspect]
     Indication: GOUT
     Route: 042
     Dates: start: 20120718, end: 20120718
  2. KRYSTEXXA INJECTION [Suspect]
     Indication: GOUT
     Route: 042
     Dates: start: 2012, end: 2012
  3. KRYSTEXXA INJECTION [Suspect]
     Indication: GOUT
     Route: 042
     Dates: start: 20120820, end: 20120820
  4. AMLODIPINE [Concomitant]
     Indication: HYPERTENSION
  5. LOSARTAN [Concomitant]
     Indication: HYPERTENSION
  6. SIMVASTATIN [Concomitant]
     Indication: BLOOD CHOLESTEROL ABNORMAL
  7. ULORIC [Concomitant]
     Indication: GOUT
  8. SOLUMEDROL [Concomitant]
     Indication: PREMEDICATION
     Route: 042
     Dates: start: 20120718, end: 20120718
  9. SOLUMEDROL [Concomitant]
     Indication: PREMEDICATION
     Route: 042
     Dates: start: 2012, end: 2012
  10. SOLUMEDROL [Concomitant]
     Indication: PREMEDICATION
     Route: 042
     Dates: start: 20120820, end: 20120820
  11. BENADRYL /00000402/ [Concomitant]
     Indication: PREMEDICATION
     Dates: start: 20120718, end: 20120718
  12. BENADRYL /00000402/ [Concomitant]
     Indication: PREMEDICATION
     Dates: start: 2012, end: 2012
  13. BENADRYL /00000402/ [Concomitant]
     Indication: PREMEDICATION
     Dates: start: 20120820, end: 20120820

REACTIONS (1)
  - Infusion related reaction [Recovered/Resolved]
